FAERS Safety Report 4277023-9 (Version None)
Quarter: 2004Q1

REPORT INFORMATION
  Report Type: 
  Country: None (occurrence: None)
  Receive Date: 20040112
  Receipt Date: 20031230
  Transmission Date: 20041129
  Serious: Yes (Other)
  Sender: FDA-Public Use
  Company Number: 12452900

PATIENT
  Sex: Female

DRUGS (1)
  1. METHOTREXATE [Suspect]
     Indication: RHEUMATOID ARTHRITIS
     Dosage: 5 MILLIGRAM, 2/1 WEEK ORAL
     Route: 048
     Dates: start: 19950401

REACTIONS (6)
  - BACTERIAL SEPSIS [None]
  - CREATININE RENAL CLEARANCE DECREASED [None]
  - GASTROINTESTINAL HAEMORRHAGE [None]
  - OVERDOSE [None]
  - PANCYTOPENIA [None]
  - THERAPEUTIC AGENT TOXICITY [None]
